FAERS Safety Report 19357647 (Version 1)
Quarter: 2021Q2

REPORT INFORMATION
  Report Type: Spontaneous
  Country: JP (occurrence: JP)
  Receive Date: 20210601
  Receipt Date: 20210601
  Transmission Date: 20210717
  Serious: Yes (Other)
  Sender: FDA-Public Use
  Company Number: NVSJ2021JP006030

PATIENT
  Age: 87 Year
  Sex: Female

DRUGS (3)
  1. BEOVU [Suspect]
     Active Substance: BROLUCIZUMAB-DBLL
     Indication: NEOVASCULAR AGE-RELATED MACULAR DEGENERATION
     Dosage: 6 MG
     Route: 031
     Dates: start: 20210216, end: 20210216
  2. BEOVU [Suspect]
     Active Substance: BROLUCIZUMAB-DBLL
     Indication: POLYPOIDAL CHOROIDAL VASCULOPATHY
  3. EYLEA [Concomitant]
     Active Substance: AFLIBERCEPT
     Indication: AGE-RELATED MACULAR DEGENERATION
     Dosage: 0.05 ML
     Route: 031

REACTIONS (4)
  - Keratic precipitates [Recovered/Resolved]
  - Eye haemorrhage [Unknown]
  - Iritis [Recovering/Resolving]
  - Blindness transient [Recovered/Resolved]

NARRATIVE: CASE EVENT DATE: 20210323
